FAERS Safety Report 4552732-2 (Version None)
Quarter: 2005Q1

REPORT INFORMATION
  Report Type: 
  Country: None (occurrence: None)
  Receive Date: 20050112
  Receipt Date: 20050112
  Transmission Date: 20050727
  Serious: No
  Sender: FDA-Public Use
  Company Number: None

PATIENT
  Age: 52 Year
  Sex: Female
  Weight: 90.7194 kg

DRUGS (2)
  1. AMITRIPTYLINE TABS M36- 50MG [Suspect]
     Indication: INSOMNIA
     Dosage: 1 TABLET AT BEDTIME
     Dates: start: 20041229, end: 20050104
  2. AMITRIPTYLINE TABS M36- 50MG [Suspect]
     Indication: PAIN
     Dosage: 1 TABLET AT BEDTIME
     Dates: start: 20041229, end: 20050104

REACTIONS (4)
  - INSOMNIA [None]
  - PHARMACEUTICAL PRODUCT COMPLAINT [None]
  - RESTLESSNESS [None]
  - THINKING ABNORMAL [None]
